FAERS Safety Report 19295117 (Version 2)
Quarter: 2021Q3

REPORT INFORMATION
  Report Type: Report from Study
  Country: DE (occurrence: DE)
  Receive Date: 20210524
  Receipt Date: 20210908
  Transmission Date: 20211014
  Serious: Yes (Hospitalization)
  Sender: FDA-Public Use
  Company Number: DE-MYLANLABS-2021M1029699

PATIENT
  Age: 60 Year
  Sex: Male

DRUGS (4)
  1. PANTOZOL [Concomitant]
     Active Substance: PANTOPRAZOLE SODIUM
     Dosage: 40 MILLIGRAM, QD
  2. ASPIRIN. [Concomitant]
     Active Substance: ASPIRIN
     Dosage: 10 MILLIGRAM, QD
  3. HULIO [Suspect]
     Active Substance: ADALIMUMAB-FKJP
     Indication: PRODUCT USED FOR UNKNOWN INDICATION
     Dosage: 40 MILLIGRAM, 3XW
     Route: 058
  4. SIMVASTATIN. [Concomitant]
     Active Substance: SIMVASTATIN
     Dosage: 20 MILLIGRAM, QD

REACTIONS (2)
  - COVID-19 pneumonia [Recovered/Resolved]
  - Localised infection [Unknown]

NARRATIVE: CASE EVENT DATE: 2021
